FAERS Safety Report 4700457-2 (Version None)
Quarter: 2005Q2

REPORT INFORMATION
  Report Type: 
  Country: None (occurrence: None)
  Receive Date: 20050627
  Receipt Date: 20050616
  Transmission Date: 20051028
  Serious: Yes (Hospitalization)
  Sender: FDA-Public Use
  Company Number: US-ROCHE-407832

PATIENT
  Age: 11 Year
  Sex: Male
  Weight: 41.3 kg

DRUGS (29)
  1. DACLIZUMAB [Suspect]
     Route: 065
     Dates: start: 20040810, end: 20040810
  2. DACLIZUMAB [Suspect]
     Route: 065
     Dates: start: 20040907, end: 20040907
  3. DACLIZUMAB [Suspect]
     Route: 065
     Dates: start: 20041005, end: 20041005
  4. DACLIZUMAB [Suspect]
     Route: 065
     Dates: start: 20041201, end: 20041201
  5. DACLIZUMAB [Suspect]
     Route: 065
     Dates: start: 20050215, end: 20050215
  6. MYCOPHENOLATE MOFETIL [Suspect]
     Route: 065
     Dates: end: 20041005
  7. MYCOPHENOLATE MOFETIL [Suspect]
     Route: 065
     Dates: start: 20050216
  8. TACROLIMUS [Suspect]
     Route: 065
  9. AZATHIOPRINE [Suspect]
     Route: 065
     Dates: start: 20041005, end: 20050216
  10. GANCICLOVIR [Concomitant]
  11. DOCUSATE [Concomitant]
  12. DOPAMINE HCL [Concomitant]
  13. LABETALOL [Concomitant]
  14. RANITIDINE [Concomitant]
  15. BACTRIM [Concomitant]
  16. CEFOTAXIME [Concomitant]
  17. VANCOMYCIN [Concomitant]
  18. NYSTATINE [Concomitant]
  19. CLINDAMYCIN [Concomitant]
  20. NIFEDIPINE [Concomitant]
  21. EPOGEN [Concomitant]
  22. FERROUS SULFATE TAB [Concomitant]
  23. AMPICILLIN SODIUM/SULBACTAM SODIUM [Concomitant]
  24. PREVACID [Concomitant]
  25. MAGNESIUM SULFATE [Concomitant]
  26. MAG PLUS [Concomitant]
  27. CEFAZOLIN [Concomitant]
  28. TYLENOL W/ CODEINE [Concomitant]
  29. CEPHALEXIN [Concomitant]

REACTIONS (23)
  - ABDOMINAL PAIN [None]
  - BLOOD CREATININE INCREASED [None]
  - CELLULITIS [None]
  - DEHYDRATION [None]
  - DISEASE RECURRENCE [None]
  - DYSURIA [None]
  - EPSTEIN-BARR VIRUS INFECTION [None]
  - FATIGUE [None]
  - FLUID INTAKE REDUCED [None]
  - HYDRONEPHROSIS [None]
  - INCISION SITE COMPLICATION [None]
  - KIDNEY TRANSPLANT REJECTION [None]
  - LYMPHADENOPATHY [None]
  - PHARYNGOLARYNGEAL PAIN [None]
  - PHARYNGOTONSILLITIS [None]
  - POST PROCEDURAL COMPLICATION [None]
  - PYREXIA [None]
  - RENAL ARTERY THROMBOSIS [None]
  - RENAL INFARCT [None]
  - TRANSPLANT REJECTION [None]
  - TUBULOINTERSTITIAL NEPHRITIS [None]
  - URETERIC OBSTRUCTION [None]
  - URETERIC STENOSIS [None]
